FAERS Safety Report 7325764-9 (Version None)
Quarter: 2011Q1

REPORT INFORMATION
  Report Type: 
  Country: None (occurrence: None)
  Receive Date: 20110302
  Receipt Date: 20101208
  Transmission Date: 20110831
  Serious: No
  Sender: FDA-Public Use
  Company Number: US-BAYER-2011-000561

PATIENT
  Sex: Female
  Weight: 57 kg

DRUGS (5)
  1. ZYRTEC [Concomitant]
  2. ONE-A-DAY [VIT C,B12,D2,B3,B6,RETINOL,B2,B1 MONONITR] [Concomitant]
  3. ALEVE (CAPLET) [Suspect]
     Indication: ANALGESIC THERAPY
     Dosage: UNK
     Route: 048
     Dates: start: 20100101
  4. FLONASE [Concomitant]
  5. PRILOSEC [Concomitant]

REACTIONS (1)
  - CONTUSION [None]
